FAERS Safety Report 8083787-9 (Version None)
Quarter: 2012Q1

REPORT INFORMATION
  Report Type: 
  Country: None (occurrence: None)
  Receive Date: 20120128
  Receipt Date: 20110201
  Transmission Date: 20120608
  Serious: No
  Sender: FDA-Public Use
  Company Number: US-ABBOTT-11P-163-0702209-00

PATIENT
  Age: 53 Year
  Sex: Female

DRUGS (9)
  1. FOLIC ACID [Concomitant]
     Indication: PRODUCT USED FOR UNKNOWN INDICATION
     Dosage: DAILY
  2. CLARITIN [Concomitant]
     Indication: HYPERSENSITIVITY
     Dosage: DAILY
  3. PRILOSEC [Concomitant]
     Indication: GASTROOESOPHAGEAL REFLUX DISEASE
     Dosage: DAILY
  4. LEXAPRO [Concomitant]
     Indication: DEPRESSION
     Dosage: DAILY
  5. DIOVAN HCT [Concomitant]
     Indication: HYPERTENSION
     Dosage: 160/25MG DAILY
  6. HUMIRA [Suspect]
     Indication: PSORIASIS
     Dates: start: 20110110
  7. METHOTREXATE [Concomitant]
     Indication: PRODUCT USED FOR UNKNOWN INDICATION
     Dosage: 6 TABLETS WEEKLY
  8. SIMVASTATIN [Concomitant]
     Indication: BLOOD CHOLESTEROL INCREASED
     Dosage: DAILY
  9. SINGULAIR [Concomitant]
     Indication: ASTHMA
     Dosage: DAILY

REACTIONS (3)
  - MOBILITY DECREASED [None]
  - PARAESTHESIA [None]
  - HYPOAESTHESIA [None]
